FAERS Safety Report 7023497-X (Version None)
Quarter: 2010Q3

REPORT INFORMATION
  Report Type: 
  Country: None (occurrence: None)
  Receive Date: 20100929
  Receipt Date: 20100929
  Transmission Date: 20110219
  Serious: Yes (Life-Threatening, Hospitalization)
  Sender: FDA-Public Use
  Company Number: None

PATIENT
  Age: 69 Year
  Sex: Female
  Weight: 61.2356 kg

DRUGS (2)
  1. OCTAGAM [Suspect]
     Indication: MULTIPLE SCLEROSIS
     Dosage: 25 GRAMS DAILY X 5 DAYS IV DRIP
     Route: 041
     Dates: start: 20100726, end: 20100728
  2. OCTAGAM [Suspect]

REACTIONS (2)
  - INFUSION RELATED REACTION [None]
  - MYOCARDIAL INFARCTION [None]
